FAERS Safety Report 13225099 (Version 1)
Quarter: 2017Q1

REPORT INFORMATION
  Report Type: Spontaneous
  Country: US (occurrence: US)
  Receive Date: 20170213
  Receipt Date: 20170213
  Transmission Date: 20170428
  Serious: No
  Sender: FDA-Public Use
  Company Number: US-GLENMARK PHARMACEUTICALS-2016GMK023184

PATIENT

DRUGS (9)
  1. TETRACYCLINE [Concomitant]
     Active Substance: TETRACYCLINE
     Indication: BORDETELLA INFECTION
  2. TRIMETHOPRIM SULFAMETHOXAZOLE [Suspect]
     Active Substance: SULFAMETHOXAZOLE\TRIMETHOPRIM
     Indication: OSTEOMYELITIS
  3. TRIMETHOPRIM SULFAMETHOXAZOLE [Suspect]
     Active Substance: SULFAMETHOXAZOLE\TRIMETHOPRIM
     Indication: BORDETELLA INFECTION
  4. TETRACYCLINE [Concomitant]
     Active Substance: TETRACYCLINE
     Indication: ARTHRITIS BACTERIAL
  5. TRIMETHOPRIM SULFAMETHOXAZOLE [Suspect]
     Active Substance: SULFAMETHOXAZOLE\TRIMETHOPRIM
     Indication: ARTHRITIS BACTERIAL
     Dosage: UNK
     Route: 065
  6. PENICILLIN [Concomitant]
     Active Substance: PENICILLIN
     Indication: ARTHRITIS BACTERIAL
  7. PENICILLIN [Concomitant]
     Active Substance: PENICILLIN
     Indication: BORDETELLA INFECTION
  8. PENICILLIN [Concomitant]
     Active Substance: PENICILLIN
     Indication: OSTEOMYELITIS
  9. TETRACYCLINE [Concomitant]
     Active Substance: TETRACYCLINE
     Indication: OSTEOMYELITIS

REACTIONS (2)
  - Therapeutic response unexpected [Unknown]
  - Product use issue [Unknown]
